FAERS Safety Report 5834578-8 (Version None)
Quarter: 2008Q3

REPORT INFORMATION
  Report Type: 
  Country: None (occurrence: None)
  Receive Date: 20080805
  Receipt Date: 20080731
  Transmission Date: 20090109
  Serious: Yes (Hospitalization)
  Sender: FDA-Public Use
  Company Number: JP-PFIZER INC-2008064035

PATIENT
  Sex: Female

DRUGS (5)
  1. AZULFIDINE EN-TABS [Suspect]
     Indication: RHEUMATOID ARTHRITIS
     Route: 065
  2. OLMESARTAN MEDOXOMIL [Suspect]
     Indication: PROPHYLAXIS
     Dosage: DAILY DOSE:5MG
     Route: 048
     Dates: start: 20080715, end: 20080722
  3. ALFAROL [Concomitant]
  4. ALENDRONIC ACID [Concomitant]
  5. ALDACTONE [Concomitant]

REACTIONS (1)
  - RENAL FAILURE ACUTE [None]
